FAERS Safety Report 8031656-2 (Version None)
Quarter: 2012Q1

REPORT INFORMATION
  Report Type: 
  Country: None (occurrence: None)
  Receive Date: 20120109
  Receipt Date: 20111206
  Transmission Date: 20120608
  Serious: Yes (Hospitalization)
  Sender: FDA-Public Use
  Company Number: AU-B.I. PHARMACEUTICALS,INC./RIDGEFIELD-2012-AU-00045AU

PATIENT
  Sex: Female

DRUGS (3)
  1. FUROSEMIDE [Concomitant]
     Indication: CARDIAC FAILURE CONGESTIVE
     Dosage: 40 MG
     Route: 048
  2. PRADAXA [Suspect]
     Indication: ATRIAL FIBRILLATION
     Dosage: 300 MG
  3. SOTALOL HCL [Concomitant]
     Dosage: 160 MG
     Route: 048

REACTIONS (2)
  - ACUTE PULMONARY OEDEMA [None]
  - EMBOLIC STROKE [None]
